FAERS Safety Report 7772300-9 (Version None)
Quarter: 2011Q3

REPORT INFORMATION
  Report Type: 
  Country: None (occurrence: None)
  Receive Date: 20110922
  Receipt Date: 20110518
  Transmission Date: 20111222
  Serious: No
  Sender: FDA-Public Use
  Company Number: US-ASTRAZENECA-2010SE21192

PATIENT
  Age: 56 Year
  Sex: Female
  Weight: 58.1 kg

DRUGS (22)
  1. VALIUM [Concomitant]
     Indication: IMPULSE-CONTROL DISORDER
     Dosage: TWO TABLETS, TWO TIMES A DAY
     Route: 048
  2. MEDICAL MARIJUANA [Concomitant]
     Indication: ANXIETY
  3. SEROQUEL XR [Suspect]
     Indication: MAJOR DEPRESSION
     Route: 048
     Dates: start: 20100101
  4. SEROQUEL XR [Suspect]
     Indication: SUICIDE ATTEMPT
     Route: 048
     Dates: start: 20100101
  5. SEROQUEL XR [Suspect]
     Route: 048
  6. VALIUM [Concomitant]
     Indication: ANXIETY
     Dosage: TWO TABLETS, TWO TIMES A DAY
     Route: 048
  7. SEROQUEL XR [Suspect]
     Route: 048
  8. SEROQUEL XR [Suspect]
     Route: 048
  9. SEROQUEL XR [Suspect]
     Route: 048
  10. SEROQUEL XR [Suspect]
     Route: 048
  11. SEROQUEL XR [Suspect]
     Indication: GENERALISED ANXIETY DISORDER
     Route: 048
     Dates: start: 20100101
  12. SEROQUEL XR [Suspect]
     Route: 048
     Dates: start: 20100101
  13. SEROQUEL XR [Suspect]
     Route: 048
  14. XANAX [Concomitant]
     Indication: ANXIETY
  15. SEROQUEL XR [Suspect]
     Indication: DEPRESSION
     Route: 048
     Dates: start: 20100101
  16. SEROQUEL XR [Suspect]
     Route: 048
  17. SEROQUEL XR [Suspect]
     Route: 048
  18. PAXIL [Concomitant]
     Indication: DEPRESSION
     Route: 048
  19. AMBIEN [Concomitant]
     Indication: SLEEP DISORDER
     Route: 048
  20. PRILOSEC OTC [Suspect]
     Indication: GASTROOESOPHAGEAL REFLUX DISEASE
     Route: 048
  21. SEROQUEL XR [Suspect]
     Route: 048
  22. SEROQUEL XR [Suspect]
     Route: 048

REACTIONS (20)
  - BACK PAIN [None]
  - DIARRHOEA [None]
  - INSOMNIA [None]
  - GENERAL PHYSICAL HEALTH DETERIORATION [None]
  - ABDOMINAL PAIN UPPER [None]
  - GASTROOESOPHAGEAL REFLUX DISEASE [None]
  - CRYING [None]
  - HALLUCINATION, AUDITORY [None]
  - ALOPECIA [None]
  - HALLUCINATION, VISUAL [None]
  - PALPITATIONS [None]
  - DRUG EFFECT DECREASED [None]
  - DRUG DOSE OMISSION [None]
  - ANXIETY [None]
  - NAUSEA [None]
  - TREMOR [None]
  - DEPRESSED MOOD [None]
  - DEPRESSION [None]
  - VOMITING [None]
  - DYSPHAGIA [None]
